FAERS Safety Report 7204067-7 (Version None)
Quarter: 2010Q4

REPORT INFORMATION
  Report Type: 
  Country: None (occurrence: None)
  Receive Date: 20101230
  Receipt Date: 20101220
  Transmission Date: 20110411
  Serious: Yes (Hospitalization, Other)
  Sender: FDA-Public Use
  Company Number: US-ELI_LILLY_AND_COMPANY-US201012002461

PATIENT
  Age: 68 Year
  Sex: Female

DRUGS (8)
  1. CYMBALTA [Suspect]
     Indication: DEPRESSION
     Dosage: 30 MG, 2/D
     Dates: start: 20070601
  2. PROZAC [Suspect]
     Indication: DEPRESSION
     Dosage: 10 MG, UNK
  3. TAMOXIFEN CITRATE [Concomitant]
  4. FEMARA [Concomitant]
  5. ACTONEL [Concomitant]
  6. BENAZEPRIL [Concomitant]
  7. ZYRTEC [Concomitant]
  8. SINGULAIR [Concomitant]

REACTIONS (8)
  - BREAST CANCER [None]
  - BRONCHITIS [None]
  - DEPRESSION [None]
  - DRUG INEFFECTIVE [None]
  - DRUG INTERACTION [None]
  - FATIGUE [None]
  - HOT FLUSH [None]
  - THYROID NEOPLASM [None]
